FAERS Safety Report 5507211-2 (Version None)
Quarter: 2007Q4

REPORT INFORMATION
  Report Type: 
  Country: None (occurrence: None)
  Receive Date: 20071102
  Receipt Date: 20071015
  Transmission Date: 20080405
  Serious: Yes (Other)
  Sender: FDA-Public Use
  Company Number: 2007SP021162

PATIENT
  Age: 83 Year
  Sex: Female

DRUGS (3)
  1. MIRALAX [Suspect]
     Indication: CONSTIPATION
     Dosage: 1 DF; ONCE; PO
     Route: 048
     Dates: start: 20071011
  2. OMEPRAZOLE [Concomitant]
  3. LEVOXYL [Concomitant]

REACTIONS (2)
  - HAEMATOCHEZIA [None]
  - HAEMORRHAGE [None]
